FAERS Safety Report 4503890-7 (Version None)
Quarter: 2004Q4

REPORT INFORMATION
  Report Type: 
  Country: None (occurrence: None)
  Receive Date: 20041115
  Receipt Date: 20041104
  Transmission Date: 20050328
  Serious: Yes (Hospitalization)
  Sender: FDA-Public Use
  Company Number: 2004088491

PATIENT
  Age: 68 Year
  Sex: Male

DRUGS (5)
  1. CARDURA XL [Suspect]
     Indication: BENIGN PROSTATIC HYPERPLASIA
     Dosage: 4 MG (4 MG, 1 IN 1 D), ORAL
     Route: 048
     Dates: start: 20030501, end: 20040901
  2. CHLORTALIDONE (CHLORTALIDONE) [Concomitant]
  3. CAPTOPRIL [Concomitant]
  4. INSULIN [Concomitant]
  5. METFORMIN HCL [Concomitant]

REACTIONS (1)
  - PROSTATIC OPERATION [None]
